FAERS Safety Report 4805988-2 (Version None)
Quarter: 2005Q4

REPORT INFORMATION
  Report Type: 
  Country: None (occurrence: None)
  Receive Date: 20051021
  Receipt Date: 20051012
  Transmission Date: 20060501
  Serious: Yes (Hospitalization, Other)
  Sender: FDA-Public Use
  Company Number: PHEH2005US11405

PATIENT
  Sex: Female

DRUGS (2)
  1. VITAMINS [Concomitant]
  2. ZELNORM [Suspect]
     Indication: IRRITABLE BOWEL SYNDROME
     Dosage: 6 MG, BID
     Route: 048

REACTIONS (4)
  - DYSPNOEA [None]
  - GLAUCOMA [None]
  - MACULAR DEGENERATION [None]
  - VISION BLURRED [None]
